FAERS Safety Report 13293068 (Version 2)
Quarter: 2018Q4

REPORT INFORMATION
  Report Type: Spontaneous
  Country: US (occurrence: US)
  Receive Date: 20170303
  Receipt Date: 20181210
  Transmission Date: 20190204
  Serious: Yes (Hospitalization, Other)
  Sender: FDA-Public Use
  Company Number: US-JNJFOC-20161207205

PATIENT
  Age: 43 Year
  Sex: Female

DRUGS (39)
  1. AZITHROMYCIN ANHYDROUS. [Concomitant]
     Active Substance: AZITHROMYCIN ANHYDROUS
     Route: 065
  2. PROZAC [Concomitant]
     Active Substance: FLUOXETINE HYDROCHLORIDE
     Route: 065
  3. CEFTIN [Concomitant]
     Active Substance: CEFUROXIME AXETIL
     Route: 065
  4. KLOR-CON [Concomitant]
     Active Substance: POTASSIUM CHLORIDE
     Route: 065
  5. BUPROPION HCL [Concomitant]
     Active Substance: BUPROPION HYDROCHLORIDE
     Route: 065
     Dates: start: 20121011
  6. CARVEDILOL. [Concomitant]
     Active Substance: CARVEDILOL
     Route: 065
  7. CLONIDINE HCL [Concomitant]
     Active Substance: CLONIDINE HYDROCHLORIDE
     Route: 065
  8. FLUCONAZOLE. [Concomitant]
     Active Substance: FLUCONAZOLE
     Route: 065
  9. MAGNESIUM [Concomitant]
     Active Substance: MAGNESIUM
     Route: 065
  10. CLINDAMYCIN HCL [Concomitant]
     Active Substance: CLINDAMYCIN HYDROCHLORIDE
     Route: 065
  11. ASPIRIN. [Suspect]
     Active Substance: ASPIRIN
     Indication: DEEP VEIN THROMBOSIS
     Route: 048
     Dates: end: 20140403
  12. METFORMIN [Concomitant]
     Active Substance: METFORMIN HYDROCHLORIDE
     Route: 065
  13. GUAIFENESIN. [Concomitant]
     Active Substance: GUAIFENESIN
     Route: 065
  14. SYMBICORT [Concomitant]
     Active Substance: BUDESONIDE\FORMOTEROL FUMARATE DIHYDRATE
     Dosage: AT VARYING DOSES OF 160 TO 4.5 MCG
     Route: 065
  15. ZOLPIDEM [Concomitant]
     Active Substance: ZOLPIDEM\ZOLPIDEM TARTRATE
     Route: 065
  16. BACTRIM DS [Concomitant]
     Active Substance: SULFAMETHOXAZOLE\TRIMETHOPRIM
     Dosage: 800 TO 160 MG
     Route: 065
  17. DICLOFENAC SODIUM. [Concomitant]
     Active Substance: DICLOFENAC SODIUM
     Route: 065
  18. CLONIDINE. [Concomitant]
     Active Substance: CLONIDINE
     Route: 065
     Dates: start: 20130123
  19. XARELTO [Suspect]
     Active Substance: RIVAROXABAN
     Indication: DEEP VEIN THROMBOSIS
     Dosage: AT VARYING DOSES OF 20 MG, 15 MG, AND 10 MG
     Route: 048
     Dates: start: 20130519, end: 20160817
  20. OXYCODONE [Concomitant]
     Active Substance: OXYCODONE
     Route: 065
  21. INSULIN LISPRO [Concomitant]
     Active Substance: INSULIN LISPRO
     Dosage: 100 UNITS/ML
     Route: 065
  22. CHERATUSSIN AC [Concomitant]
     Active Substance: CODEINE PHOSPHATE\GUAIFENESIN
     Dosage: 100 MG TO 10 MG/5 ML
     Route: 065
  23. LEVAQUIN [Concomitant]
     Active Substance: LEVOFLOXACIN
     Route: 065
  24. METHYLPREDNISOLONE. [Concomitant]
     Active Substance: METHYLPREDNISOLONE
     Route: 065
  25. FLUOXETINE [Concomitant]
     Active Substance: FLUOXETINE HYDROCHLORIDE
     Route: 065
  26. NICOTINE. [Concomitant]
     Active Substance: NICOTINE
     Route: 065
  27. BACTROBAN [Concomitant]
     Active Substance: MUPIROCIN\MUPIROCIN CALCIUM
     Route: 065
  28. CEFALEXIN [Concomitant]
     Active Substance: CEPHALEXIN
     Route: 065
  29. ZESTRIL [Concomitant]
     Active Substance: LISINOPRIL
     Route: 065
  30. AMITRIPTYLINE [Concomitant]
     Active Substance: AMITRIPTYLINE
     Route: 065
  31. AMBIEN [Concomitant]
     Active Substance: ZOLPIDEM TARTRATE
     Route: 065
  32. ENOXAPARIN [Concomitant]
     Active Substance: ENOXAPARIN
     Dosage: 40 MG/0.4 ML
     Route: 065
  33. CHANTIX [Concomitant]
     Active Substance: VARENICLINE TARTRATE
     Route: 065
  34. METOPROLOL SUCCINATE. [Concomitant]
     Active Substance: METOPROLOL SUCCINATE
     Route: 065
  35. TRAMADOL HCL [Concomitant]
     Active Substance: TRAMADOL HYDROCHLORIDE
     Route: 065
     Dates: start: 20120111
  36. ATORVASTATIN CALCIUM. [Concomitant]
     Active Substance: ATORVASTATIN CALCIUM
     Route: 065
  37. FLONASE [Concomitant]
     Active Substance: FLUTICASONE PROPIONATE
     Dosage: 50 MCG
     Route: 065
  38. HYDRALAZINE [Concomitant]
     Active Substance: HYDRALAZINE HYDROCHLORIDE
     Route: 065
  39. GLUCOPHAGE [Concomitant]
     Active Substance: METFORMIN HYDROCHLORIDE
     Route: 065

REACTIONS (2)
  - Haemoptysis [Recovered/Resolved]
  - Ear haemorrhage [Recovered/Resolved]

NARRATIVE: CASE EVENT DATE: 20130526
